FAERS Safety Report 11541918 (Version 1)
Quarter: 2015Q3

REPORT INFORMATION
  Report Type: Spontaneous
  Country: US (occurrence: US)
  Receive Date: 20150903
  Receipt Date: 20150903
  Transmission Date: 20151125
  Serious: Yes (Other)
  Sender: FDA-Public Use
  Company Number: US-ELI_LILLY_AND_COMPANY-US201108004841

PATIENT
  Age: 48 Year
  Sex: Male
  Weight: 105.67 kg

DRUGS (4)
  1. HUMALOG [Suspect]
     Active Substance: INSULIN LISPRO
     Indication: BLOOD GLUCOSE ABNORMAL
     Dosage: UNK, UNKNOWN
     Route: 058
  2. HUMALOG [Suspect]
     Active Substance: INSULIN LISPRO
     Dosage: UNK, UNKNOWN
     Route: 058
  3. HUMALOG [Suspect]
     Active Substance: INSULIN LISPRO
     Indication: BLOOD GLUCOSE ABNORMAL
     Dosage: UNK, UNKNOWN
  4. HUMALOG [Suspect]
     Active Substance: INSULIN LISPRO
     Dosage: UNK, UNKNOWN
     Route: 058

REACTIONS (5)
  - Hypoglycaemic unconsciousness [Recovered/Resolved]
  - Blood glucose decreased [Recovered/Resolved]
  - Expired product administered [Unknown]
  - Blood glucose increased [Recovered/Resolved]
  - Drug ineffective [Recovered/Resolved]

NARRATIVE: CASE EVENT DATE: 201011
